FAERS Safety Report 8542114-0 (Version None)
Quarter: 2012Q3

REPORT INFORMATION
  Report Type: 
  Country: None (occurrence: None)
  Receive Date: 20120726
  Receipt Date: 20111019
  Transmission Date: 20120928
  Serious: No
  Sender: FDA-Public Use
  Company Number: US-ASTRAZENECA-2011SE63270

PATIENT
  Age: 17 Year
  Sex: Male
  Weight: 56.7 kg

DRUGS (8)
  1. SEROQUEL XR [Suspect]
     Route: 048
  2. LITHIUM CARBONATE [Concomitant]
  3. VYVANSE [Concomitant]
  4. SEROQUEL XR [Suspect]
     Indication: ATTENTION DEFICIT/HYPERACTIVITY DISORDER
     Route: 048
     Dates: start: 20090101
  5. SEROQUEL XR [Suspect]
     Indication: ASPERGER'S DISORDER
     Route: 048
     Dates: start: 20090101
  6. SEROQUEL XR [Suspect]
     Indication: OPPOSITIONAL DEFIANT DISORDER
     Route: 048
     Dates: start: 20090101
  7. SEROQUEL XR [Suspect]
     Route: 048
  8. SEROQUEL XR [Suspect]
     Route: 048

REACTIONS (2)
  - AGGRESSION [None]
  - OFF LABEL USE [None]
